FAERS Safety Report 15248331 (Version 1)
Quarter: 2018Q3

REPORT INFORMATION
  Report Type: Spontaneous
  Country: US (occurrence: US)
  Receive Date: 20180715
  Receipt Date: 20180715
  Transmission Date: 20181010
  Serious: Yes (Disabling, Other)
  Sender: FDA-Public Use
  Company Number: None

PATIENT
  Age: 61 Year
  Sex: Female
  Weight: 67.5 kg

DRUGS (5)
  1. COQ10 [Concomitant]
     Active Substance: UBIDECARENONE
  2. LEVOFLOXACIN. [Suspect]
     Active Substance: LEVOFLOXACIN
     Indication: PNEUMONIA
     Dosage: ?          QUANTITY:17 TABLET(S);?
     Route: 048
     Dates: start: 20180124
  3. MANGANESE [Concomitant]
     Active Substance: MANGANESE\MANGANESE CHLORIDE
  4. L?PROLINE [Concomitant]
  5. L?LYSINE [Concomitant]
     Active Substance: LYSINE

REACTIONS (7)
  - Joint range of motion decreased [None]
  - Musculoskeletal pain [None]
  - Tendon disorder [None]
  - Fatigue [None]
  - Quality of life decreased [None]
  - Exercise tolerance decreased [None]
  - Weight increased [None]

NARRATIVE: CASE EVENT DATE: 20180124
